FAERS Safety Report 20964491 (Version 1)
Quarter: 2022Q2

REPORT INFORMATION
  Report Type: Spontaneous
  Country: SK (occurrence: SK)
  Receive Date: 20220615
  Receipt Date: 20220615
  Transmission Date: 20220721
  Serious: Yes (Death, Hospitalization, Other)
  Sender: FDA-Public Use
  Company Number: SK-KOREA IPSEN Pharma-2022-15963

PATIENT
  Age: 60 Year
  Sex: Male

DRUGS (4)
  1. IMODIUM [Suspect]
     Active Substance: LOPERAMIDE HYDROCHLORIDE
     Indication: Product used for unknown indication
     Route: 065
     Dates: start: 201803
  2. OCTREOTIDE [Suspect]
     Active Substance: OCTREOTIDE
     Indication: Carcinoid syndrome
     Dosage: 0.1 ML EACH 12 HOURS OR ACCORDING TO SYMPTOMS
     Route: 058
     Dates: start: 201803
  3. LANREOTIDE ACETATE [Suspect]
     Active Substance: LANREOTIDE ACETATE
     Indication: Carcinoid syndrome
     Route: 058
     Dates: start: 201804
  4. TELOTRISTAT [Suspect]
     Active Substance: TELOTRISTAT
     Indication: Carcinoid syndrome
     Route: 065
     Dates: start: 201904

REACTIONS (13)
  - Blood urea increased [Fatal]
  - Carcinoid crisis [Fatal]
  - Metabolic disorder [Fatal]
  - Somnolence [Fatal]
  - Inflammation [Fatal]
  - Death [Fatal]
  - Renal failure [Fatal]
  - Enteritis [Fatal]
  - Hydrocholecystis [Fatal]
  - Tachycardia [Fatal]
  - Metabolic acidosis [Fatal]
  - Sepsis [Fatal]
  - Disease progression [Fatal]

NARRATIVE: CASE EVENT DATE: 20200401
